FAERS Safety Report 16437493 (Version 1)
Quarter: 2019Q2

REPORT INFORMATION
  Report Type: Spontaneous
  Country: RO (occurrence: RO)
  Receive Date: 20190615
  Receipt Date: 20190615
  Transmission Date: 20190711
  Serious: Yes (Hospitalization)
  Sender: FDA-Public Use
  Company Number: RO-PANACEA BIOTEC LIMITED-000001

PATIENT
  Age: 42 Year

DRUGS (8)
  1. TACROLIMUS. [Suspect]
     Active Substance: TACROLIMUS
     Indication: PROPHYLAXIS AGAINST TRANSPLANT REJECTION
     Dosage: WEEKLY
     Route: 065
  2. OMBITASVIR [Concomitant]
     Active Substance: OMBITASVIR
     Indication: PRODUCT USED FOR UNKNOWN INDICATION
     Route: 065
  3. PREDNISONE. [Concomitant]
     Active Substance: PREDNISONE
     Indication: PROPHYLAXIS AGAINST TRANSPLANT REJECTION
     Route: 065
  4. PARITAPREVIR [Concomitant]
     Active Substance: PARITAPREVIR
     Indication: PRODUCT USED FOR UNKNOWN INDICATION
     Route: 065
  5. DASABUVIR [Concomitant]
     Active Substance: DASABUVIR
     Indication: PRODUCT USED FOR UNKNOWN INDICATION
  6. MYCOPHENOLATE MOFETIL. [Concomitant]
     Active Substance: MYCOPHENOLATE MOFETIL
     Indication: PROPHYLAXIS AGAINST TRANSPLANT REJECTION
     Route: 065
  7. RITONAVIR. [Concomitant]
     Active Substance: RITONAVIR
     Indication: PRODUCT USED FOR UNKNOWN INDICATION
     Route: 065
  8. TACROLIMUS. [Suspect]
     Active Substance: TACROLIMUS
     Indication: PROPHYLAXIS AGAINST TRANSPLANT REJECTION
     Route: 065

REACTIONS (3)
  - Diabetes mellitus [Recovered/Resolved]
  - Overdose [Unknown]
  - Drug level increased [Recovered/Resolved]
